FAERS Safety Report 13044252 (Version 1)
Quarter: 2016Q4

REPORT INFORMATION
  Report Type: Spontaneous
  Country: US (occurrence: US)
  Receive Date: 20161219
  Receipt Date: 20161219
  Transmission Date: 20170207
  Serious: Yes (Other)
  Sender: FDA-Public Use
  Company Number: None

PATIENT
  Age: 50 Year
  Sex: Female
  Weight: 82.8 kg

DRUGS (19)
  1. LEVOTHYROXIN [Concomitant]
     Active Substance: LEVOTHYROXINE
  2. FEXOFENADINE [Concomitant]
     Active Substance: FEXOFENADINE\FEXOFENADINE HYDROCHLORIDE
  3. NITROGLYCERIN. [Concomitant]
     Active Substance: NITROGLYCERIN
  4. PRED FORTE [Concomitant]
     Active Substance: PREDNISOLONE ACETATE
  5. COPPER [Concomitant]
     Active Substance: COPPER
  6. EPIPEN [Concomitant]
     Active Substance: EPINEPHRINE
  7. ROCK STAR ENERGY DRINK [Concomitant]
  8. MELOXICAM TABLETS, USP [Suspect]
     Active Substance: MELOXICAM
     Indication: ARTHRALGIA
     Dosage: ?          QUANTITY:1 TABLET(S);?
     Route: 048
     Dates: start: 20161012, end: 20161209
  9. VITAMIN E [Concomitant]
     Active Substance: .ALPHA.-TOCOPHEROL
  10. LUTEIN [Concomitant]
     Active Substance: LUTEIN
  11. RANITIDINE. [Concomitant]
     Active Substance: RANITIDINE
  12. VITAMIN C [Concomitant]
     Active Substance: ASCORBIC ACID
  13. BENADRYL [Concomitant]
     Active Substance: DIPHENHYDRAMINE HYDROCHLORIDE
  14. ZEAXANTHIN [Concomitant]
     Active Substance: ZEAXANTHIN
  15. ADDERALL [Concomitant]
     Active Substance: AMPHETAMINE ASPARTATE\AMPHETAMINE SULFATE\DEXTROAMPHETAMINE SACCHARATE\DEXTROAMPHETAMINE SULFATE
  16. FLORENT HFA [Concomitant]
  17. VITAMIN D3 [Concomitant]
     Active Substance: CHOLECALCIFEROL
  18. ZINC [Concomitant]
     Active Substance: ZINC\ZINC CHLORIDE
  19. PROAIR HFA [Concomitant]
     Active Substance: ALBUTEROL SULFATE

REACTIONS (21)
  - Apathy [None]
  - Impatience [None]
  - Angina pectoris [None]
  - Headache [None]
  - Head discomfort [None]
  - Hypersomnia [None]
  - Nasopharyngitis [None]
  - Decreased interest [None]
  - Memory impairment [None]
  - Painful respiration [None]
  - Chest discomfort [None]
  - Cognitive disorder [None]
  - Back pain [None]
  - Swelling face [None]
  - Mouth swelling [None]
  - Condition aggravated [None]
  - Fatigue [None]
  - Agitation [None]
  - Influenza [None]
  - Swelling [None]
  - Blood pressure increased [None]

NARRATIVE: CASE EVENT DATE: 20161209
